FAERS Safety Report 7868624-7 (Version None)
Quarter: 2011Q4

REPORT INFORMATION
  Report Type: 
  Country: None (occurrence: None)
  Receive Date: 20111028
  Receipt Date: 20101215
  Transmission Date: 20120403
  Serious: No
  Sender: FDA-Public Use
  Company Number: US-AMGEN-USASP2010009515

PATIENT
  Sex: Female

DRUGS (1)
  1. ENBREL [Suspect]
     Indication: RHEUMATOID ARTHRITIS
     Dates: start: 20000101

REACTIONS (7)
  - MUSCULOSKELETAL PAIN [None]
  - JOINT STIFFNESS [None]
  - INJECTION SITE PAIN [None]
  - VITAMIN D DEFICIENCY [None]
  - FATIGUE [None]
  - INJECTION SITE ERYTHEMA [None]
  - ARTHRALGIA [None]
